FAERS Safety Report 25384004 (Version 1)
Quarter: 2025Q2

REPORT INFORMATION
  Report Type: Spontaneous
  Country: BR (occurrence: BR)
  Receive Date: 20250602
  Receipt Date: 20250602
  Transmission Date: 20250717
  Serious: Yes (Hospitalization)
  Sender: EMD SERONO INC
  Company Number: BR-Merck Healthcare KGaA-2025026613

PATIENT
  Age: 39 Year
  Sex: Female

DRUGS (1)
  1. EUTHYROX [Suspect]
     Active Substance: LEVOTHYROXINE SODIUM
     Indication: Thyroid cancer
     Dosage: 88 MCG (MONDAY TO WEDNESDAY) ?BR170118 - 75 MCG (THURSDAY TO SUNDAY)
     Dates: start: 20170820

REACTIONS (5)
  - Tachycardia [Recovering/Resolving]
  - Underweight [Recovering/Resolving]
  - COVID-19 [Unknown]
  - Hyperthyroidism [Recovering/Resolving]
  - Hypothyroidism [Recovering/Resolving]

NARRATIVE: CASE EVENT DATE: 20250404
